FAERS Safety Report 25044467 (Version 1)
Quarter: 2025Q1

REPORT INFORMATION
  Report Type: Report from Study
  Country: US (occurrence: US)
  Receive Date: 20250306
  Receipt Date: 20250306
  Transmission Date: 20250409
  Serious: No
  Sender: SUNOVION
  Company Number: US-SUMITOMO PHARMA SWITZERLAND GMBH-2025SPA001604

PATIENT

DRUGS (1)
  1. ORGOVYX [Suspect]
     Active Substance: RELUGOLIX
     Indication: Prostate cancer
     Dosage: 120 MG, QD
     Route: 048
     Dates: start: 20241209

REACTIONS (6)
  - Mental impairment [Unknown]
  - Aphasia [Unknown]
  - Feeling of body temperature change [Unknown]
  - Affect lability [Unknown]
  - Feeling abnormal [Unknown]
  - Affective disorder [Unknown]
